FAERS Safety Report 6756023-0 (Version None)
Quarter: 2010Q2

REPORT INFORMATION
  Report Type: 
  Country: None (occurrence: None)
  Receive Date: 20100604
  Receipt Date: 20100601
  Transmission Date: 20101027
  Serious: Yes (Death, Other)
  Sender: FDA-Public Use
  Company Number: US-SANOFI-AVENTIS-2010SA031756

PATIENT
  Sex: Female

DRUGS (1)
  1. LOVENOX [Suspect]
     Dosage: 1 MG/KG
     Route: 065

REACTIONS (4)
  - BLOOD CREATININE DECREASED [None]
  - DEATH [None]
  - HAEMORRHAGE [None]
  - RENAL IMPAIRMENT [None]
